FAERS Safety Report 7138741-8 (Version None)
Quarter: 2010Q4

REPORT INFORMATION
  Report Type: 
  Country: None (occurrence: None)
  Receive Date: 20101201
  Receipt Date: 20101201
  Transmission Date: 20110411
  Serious: Yes (Disabling)
  Sender: FDA-Public Use
  Company Number: None

PATIENT
  Sex: Male
  Weight: 31 kg

DRUGS (8)
  1. RITUXIMAB (ANTI-CD20) GENETECH [Suspect]
     Indication: ENCEPHALITIS
     Dosage: 375 MG/M2 1 X 4 WK IV INFUSION
     Route: 042
     Dates: start: 20081114, end: 20081205
  2. METHYLPREDNISOLONE [Suspect]
     Indication: CONVULSION
     Dosage: 20 MG/M2/DAY 4 DAYS/MO X2, THEN X1 IV, LATER PO
     Route: 042
     Dates: start: 20081219
  3. BACTRIM [Concomitant]
  4. PREVACID [Concomitant]
  5. LAMICTAL [Concomitant]
  6. TRILEPTAL [Concomitant]
  7. KLONOPIN [Concomitant]
  8. IMMUNE GLOBULIN INTRAVENOUS (HUMAN) [Concomitant]

REACTIONS (2)
  - B-LYMPHOCYTE COUNT DECREASED [None]
  - HYPOGAMMAGLOBULINAEMIA [None]
